FAERS Safety Report 15770125 (Version 3)
Quarter: 2019Q3

REPORT INFORMATION
  Report Type: Spontaneous
  Country: US (occurrence: US)
  Receive Date: 20181228
  Receipt Date: 20190719
  Transmission Date: 20191004
  Serious: No
  Sender: FDA-Public Use
  Company Number: US-PFIZER INC-2018531146

PATIENT
  Age: 79 Year
  Sex: Female
  Weight: 75 kg

DRUGS (2)
  1. LETROZOLE. [Concomitant]
     Active Substance: LETROZOLE
     Dosage: UNK
  2. IBRANCE [Suspect]
     Active Substance: PALBOCICLIB
     Indication: BREAST CANCER METASTATIC
     Dosage: 125 MG, CYCLIC (DAYS 1-21 Q28 DAYS)
     Route: 048
     Dates: start: 20161209, end: 201907

REACTIONS (11)
  - Neoplasm progression [Unknown]
  - Musculoskeletal pain [Unknown]
  - Seasonal allergy [Unknown]
  - Sinusitis [Unknown]
  - Hypersensitivity [Unknown]
  - Dyspnoea [Unknown]
  - Productive cough [Unknown]
  - Osteoarthritis [Unknown]
  - Osteopenia [Unknown]
  - Urinary tract infection [Unknown]
  - Sinus disorder [Unknown]
